FAERS Safety Report 18915952 (Version 1)
Quarter: 2021Q1

REPORT INFORMATION
  Report Type: Spontaneous
  Country: RU (occurrence: RU)
  Receive Date: 20210219
  Receipt Date: 20210219
  Transmission Date: 20210420
  Serious: Yes (Life-Threatening)
  Sender: FDA-Public Use
  Company Number: RU-ASTRAZENECA-2021A060650

PATIENT
  Age: 17 Year
  Sex: Female
  Weight: 64 kg

DRUGS (1)
  1. SYMBICORT [Suspect]
     Active Substance: BUDESONIDE\FORMOTEROL FUMARATE DIHYDRATE
     Dosage: 160 MCG UNKNOWN UNKNOWN
     Route: 055

REACTIONS (1)
  - Asphyxia [Recovering/Resolving]

NARRATIVE: CASE EVENT DATE: 20171110
